FAERS Safety Report 23027492 (Version 1)
Quarter: 2023Q4

REPORT INFORMATION
  Report Type: Spontaneous
  Country: None (occurrence: FR)
  Receive Date: 20231004
  Receipt Date: 20231004
  Transmission Date: 20240110
  Serious: Yes (Life-Threatening)
  Sender: FDA-Public Use
  Company Number: FR-AFSSAPS-LY2023001515

PATIENT
  Sex: Female

DRUGS (2)
  1. OXYGEN [Suspect]
     Active Substance: OXYGEN
     Indication: Respiratory disorder
     Route: 055
  2. AIR COMPRESSED [Suspect]
     Active Substance: OXYGEN
     Route: 055
     Dates: start: 20230824, end: 20230824

REACTIONS (2)
  - Cardio-respiratory arrest [Recovered/Resolved]
  - Hypoxia [Recovered/Resolved]

NARRATIVE: CASE EVENT DATE: 20230824
